FAERS Safety Report 5899574-3 (Version None)
Quarter: 2008Q3

REPORT INFORMATION
  Report Type: 
  Country: None (occurrence: None)
  Receive Date: 20080926
  Receipt Date: 20080920
  Transmission Date: 20090109
  Serious: Yes (Other)
  Sender: FDA-Public Use
  Company Number: PHHY2008MX22110

PATIENT
  Age: 59 Year
  Sex: Female

DRUGS (2)
  1. EXFORGE [Suspect]
     Indication: HYPERTENSION
     Dosage: 1 DF, QD
     Dates: start: 20080821, end: 20080920
  2. LIPITOR [Concomitant]

REACTIONS (2)
  - DRUG TOXICITY [None]
  - OEDEMA PERIPHERAL [None]
